FAERS Safety Report 7576735-9 (Version None)
Quarter: 2011Q2

REPORT INFORMATION
  Report Type: 
  Country: None (occurrence: None)
  Receive Date: 20110628
  Receipt Date: 20110523
  Transmission Date: 20111010
  Serious: Yes (Hospitalization, Other)
  Sender: FDA-Public Use
  Company Number: US-BAYER-2010-003988

PATIENT
  Age: 33 Year
  Sex: Female
  Weight: 56.236 kg

DRUGS (2)
  1. YAZ [Suspect]
     Indication: ACNE
     Dosage: UNK UNK, QD
     Route: 048
  2. CANASA [Concomitant]
     Dosage: 1.000 MG, QD
     Route: 054

REACTIONS (5)
  - PAIN [None]
  - GALLBLADDER DISORDER [None]
  - GALLBLADDER NON-FUNCTIONING [None]
  - PANCREATITIS [None]
  - CHOLECYSTITIS CHRONIC [None]
